FAERS Safety Report 9844017 (Version 1)
Quarter: 2013Q4

REPORT INFORMATION
  Report Type: Spontaneous
  Country: US (occurrence: None)
  Receive Date: 20131223
  Receipt Date: 20131223
  Transmission Date: 20140711
  Serious: No
  Sender: FDA-Public Use
  Company Number: 1000049010

PATIENT
  Age: 87 Year
  Sex: Female

DRUGS (4)
  1. LINZESS (LINACLOTIDE) (290 MICROGRAM, CAPSULES) [Suspect]
     Indication: CONSTIPATION
     Route: 048
     Dates: start: 201309, end: 201309
  2. METOPROLOL (METOPROLOL) [Concomitant]
  3. NORVASC (AMLODIPINE BESILATE) (AMLODIPINE BESILATE) [Concomitant]
  4. RANITIDINE (RANITIDINE) [Concomitant]

REACTIONS (2)
  - Diarrhoea [None]
  - Palpitations [None]
